FAERS Safety Report 5802990-9 (Version None)
Quarter: 2008Q3

REPORT INFORMATION
  Report Type: 
  Country: None (occurrence: None)
  Receive Date: 20080708
  Receipt Date: 20080630
  Transmission Date: 20090109
  Serious: Yes (Hospitalization)
  Sender: FDA-Public Use
  Company Number: IT-ASTRAZENECA-2008SE02669

PATIENT
  Sex: Male

DRUGS (11)
  1. LIDOCAINE [Suspect]
     Route: 058
  2. CARVIPRESS [Concomitant]
  3. CONVERTEN [Concomitant]
  4. LASIX [Concomitant]
  5. LANOXIN [Concomitant]
  6. PARIET [Concomitant]
  7. KANRENOL [Concomitant]
  8. TICLID [Concomitant]
  9. GLIBOMET [Concomitant]
     Dosage: GLIBENCLAMIDE 400 MG + METFORMIN 2.5 MG
  10. ESKIM [Concomitant]
  11. VANCOMYCIN [Concomitant]

REACTIONS (1)
  - LARYNGEAL OEDEMA [None]
